FAERS Safety Report 25777936 (Version 1)
Quarter: 2025Q3

REPORT INFORMATION
  Report Type: Spontaneous
  Country: US (occurrence: US)
  Receive Date: 20250909
  Receipt Date: 20250909
  Transmission Date: 20251021
  Serious: No
  Sender: PL DEVELOPMENTS
  Company Number: US-P+L Devolo-2184128

PATIENT
  Sex: Female

DRUGS (1)
  1. DOCOSANOL [Suspect]
     Active Substance: DOCOSANOL
     Indication: Acne

REACTIONS (2)
  - Drug effective for unapproved indication [Unknown]
  - Product use in unapproved indication [Unknown]
